FAERS Safety Report 26135685 (Version 1)
Quarter: 2025Q4

REPORT INFORMATION
  Report Type: Spontaneous
  Country: US (occurrence: None)
  Receive Date: 20251208
  Receipt Date: 20251208
  Transmission Date: 20260117
  Serious: Yes (Death)
  Sender: FDA-CTU
  Company Number: None

PATIENT
  Age: 92 Year
  Sex: Female

DRUGS (1)
  1. COLLAGENASE SANTYL [Suspect]
     Active Substance: COLLAGENASE CLOSTRIDIUM HISTOLYTICUM
     Indication: Wound treatment
     Dosage: FREQUENCY : DAILY;
     Route: 061
     Dates: start: 20251112, end: 20251208

REACTIONS (1)
  - Death [None]

NARRATIVE: CASE EVENT DATE: 20251208
